FAERS Safety Report 8517024-5 (Version None)
Quarter: 2012Q3

REPORT INFORMATION
  Report Type: 
  Country: None (occurrence: None)
  Receive Date: 20120718
  Receipt Date: 20120713
  Transmission Date: 20120928
  Serious: Yes (Hospitalization)
  Sender: FDA-Public Use
  Company Number: US-BAYER-2012-015830

PATIENT
  Age: 35 Year
  Sex: Female
  Weight: 114.29 kg

DRUGS (10)
  1. GLIMEPIRIDE [Concomitant]
     Dosage: UNK
     Dates: start: 20060101
  2. YAZ [Suspect]
     Indication: PREMENSTRUAL SYNDROME
     Dosage: UNK
     Dates: start: 20080101, end: 20101101
  3. DROSPIRENONE AND ETHINYL ESTRADIOL [Suspect]
     Indication: PREMENSTRUAL SYNDROME
     Dosage: UNK
     Dates: start: 20080101, end: 20101101
  4. METFORMIN HYDROCHLORIDE [Concomitant]
     Indication: TYPE 2 DIABETES MELLITUS
     Dosage: UNK
     Dates: start: 20020101
  5. DIOVAN [Concomitant]
     Dosage: UNK
     Dates: start: 20050101, end: 20111001
  6. YAZ [Suspect]
  7. DROSPIRENONE AND ETHINYL ESTRADIOL [Suspect]
  8. LEVOTHYROXINE SODIUM [Concomitant]
     Dosage: UNK
     Dates: start: 20030101
  9. VITAFOL [Concomitant]
     Dosage: UNK
     Dates: start: 20060101
  10. METHYLPREDNISOLONE [Concomitant]
     Dosage: UNK

REACTIONS (5)
  - GALLBLADDER DISORDER [None]
  - PAIN [None]
  - MENTAL DISORDER [None]
  - CHOLECYSTITIS CHRONIC [None]
  - INJURY [None]
